FAERS Safety Report 6737390-0 (Version None)
Quarter: 2010Q2

REPORT INFORMATION
  Report Type: 
  Country: None (occurrence: None)
  Receive Date: 20100524
  Receipt Date: 20100520
  Transmission Date: 20101027
  Serious: Yes (Hospitalization, Other)
  Sender: FDA-Public Use
  Company Number: US-ASTRAZENECA-2009UW19097

PATIENT
  Age: 537 Month
  Sex: Male
  Weight: 113.4 kg

DRUGS (13)
  1. SEROQUEL [Suspect]
     Indication: BIPOLAR I DISORDER
     Route: 048
     Dates: start: 20070126, end: 20080301
  2. SEROQUEL [Suspect]
     Route: 048
     Dates: start: 20080316
  3. ZYPREXA [Concomitant]
  4. LEXAPRO [Concomitant]
     Dates: start: 20080301, end: 20080801
  5. LAMICTAL [Concomitant]
     Dates: start: 20070126
  6. CARTIA XT [Concomitant]
  7. METOPROLOL TARTRATE [Concomitant]
  8. SOMA [Concomitant]
  9. VALIUM [Concomitant]
     Indication: ANXIETY
     Dosage: ONCE OR TWICE DAILY
     Dates: start: 20020101
  10. VALIUM [Concomitant]
  11. ASPIRIN [Concomitant]
  12. CYMBALTA [Concomitant]
  13. LORTAB [Concomitant]
     Dosage: 10/650 MG THREE TIMES DAILY

REACTIONS (9)
  - BLOOD CHOLESTEROL INCREASED [None]
  - BLOOD TRIGLYCERIDES INCREASED [None]
  - DIABETES MELLITUS INADEQUATE CONTROL [None]
  - DIABETIC GASTROPARESIS [None]
  - DIABETIC KETOACIDOSIS [None]
  - DYSLIPIDAEMIA [None]
  - HYPERLIPIDAEMIA [None]
  - TYPE 1 DIABETES MELLITUS [None]
  - TYPE 2 DIABETES MELLITUS [None]
